FAERS Safety Report 4457589-6 (Version None)
Quarter: 2004Q3

REPORT INFORMATION
  Report Type: 
  Country: None (occurrence: None)
  Receive Date: 20040902
  Receipt Date: 20040623
  Transmission Date: 20050211
  Serious: No
  Sender: FDA-Public Use
  Company Number: 200412044BWH

PATIENT
  Age: 57 Year
  Sex: Male

DRUGS (8)
  1. LEVITRA [Suspect]
     Indication: ERECTILE DYSFUNCTION
     Dosage: SEE IMAGE, ORAL
     Route: 048
  2. VIAGRA [Concomitant]
  3. TOPROL-XL [Concomitant]
  4. ALTACE [Concomitant]
  5. AVANDIA [Concomitant]
  6. GLUCOPHAGE [Concomitant]
  7. GLUCOTROL [Concomitant]
  8. LIPITOR [Concomitant]

REACTIONS (1)
  - ERECTILE DYSFUNCTION [None]
